FAERS Safety Report 6009993-2 (Version None)
Quarter: 2008Q4

REPORT INFORMATION
  Report Type: 
  Country: None (occurrence: None)
  Receive Date: 20081216
  Receipt Date: 20081202
  Transmission Date: 20090506
  Serious: Yes (Death)
  Sender: FDA-Public Use
  Company Number: 2008US003294

PATIENT
  Age: 18 Year
  Sex: Female

DRUGS (2)
  1. PROGRAF [Suspect]
     Indication: HEART AND LUNG TRANSPLANT
  2. SIROLIMUS(SIROLIMUS) [Suspect]
     Indication: HEART TRANSPLANT

REACTIONS (5)
  - CAUDA EQUINA SYNDROME [None]
  - HEPATIC LESION [None]
  - METASTASES TO SPINE [None]
  - SARCOMA METASTATIC [None]
  - TUMOUR COMPRESSION [None]
